FAERS Safety Report 8334767-7 (Version None)
Quarter: 2012Q2

REPORT INFORMATION
  Report Type: 
  Country: None (occurrence: None)
  Receive Date: 20120503
  Receipt Date: 20120426
  Transmission Date: 20120825
  Serious: Yes (Hospitalization)
  Sender: FDA-Public Use
  Company Number: US-US-EMD SERONO, INC.-7125521

PATIENT
  Sex: Male
  Weight: 75 kg

DRUGS (6)
  1. NAPROXEN (ALEVE) [Concomitant]
     Indication: PREMEDICATION
  2. GABAPENTIN [Concomitant]
     Indication: PAIN IN EXTREMITY
     Dosage: FOUR YEARS
  3. REQUIP [Concomitant]
     Indication: RESTLESS LEGS SYNDROME
  4. REBIF [Suspect]
     Indication: MULTIPLE SCLEROSIS
     Route: 058
     Dates: start: 20060226
  5. DILANTIN [Concomitant]
     Indication: PAIN IN EXTREMITY
  6. TYLENOL (CAPLET) [Concomitant]
     Indication: PREMEDICATION

REACTIONS (5)
  - ASTHENIA [None]
  - ANAEMIA [None]
  - PYREXIA [None]
  - SPINAL COMPRESSION FRACTURE [None]
  - BALANCE DISORDER [None]
